FAERS Safety Report 8030999-6 (Version None)
Quarter: 2012Q1

REPORT INFORMATION
  Report Type: 
  Country: None (occurrence: None)
  Receive Date: 20120109
  Receipt Date: 20120104
  Transmission Date: 20120608
  Serious: Yes (Hospitalization)
  Sender: FDA-Public Use
  Company Number: US-GILEAD-2011-0048090

PATIENT
  Age: 90 Year
  Sex: Male

DRUGS (3)
  1. COUMADIN [Concomitant]
  2. LETAIRIS [Suspect]
     Indication: PRODUCT USED FOR UNKNOWN INDICATION
     Dosage: 5 MG, UNK
     Route: 048
     Dates: start: 20110208
  3. REVATIO [Concomitant]

REACTIONS (2)
  - HAEMATOMA [None]
  - FALL [None]
